FAERS Safety Report 5137542-X (Version None)
Quarter: 2006Q4

REPORT INFORMATION
  Report Type: 
  Country: None (occurrence: None)
  Receive Date: 20061030
  Receipt Date: 20051117
  Transmission Date: 20070319
  Serious: No
  Sender: FDA-Public Use
  Company Number: US-GLAXOSMITHKLINE-A0582745A

PATIENT
  Age: 66 Year
  Sex: Female

DRUGS (2)
  1. ADVAIR HFA [Suspect]
     Indication: ASTHMA
     Dosage: 1BLS PER DAY
     Route: 055
     Dates: start: 20050501
  2. FOSAMAX [Concomitant]

REACTIONS (3)
  - DYSPHONIA [None]
  - MUSCLE TIGHTNESS [None]
  - THROAT IRRITATION [None]
